FAERS Safety Report 24692678 (Version 4)
Quarter: 2024Q4

REPORT INFORMATION
  Report Type: Spontaneous
  Country: US (occurrence: US)
  Receive Date: 20241203
  Receipt Date: 20241223
  Transmission Date: 20250114
  Serious: No
  Sender: PFIZER
  Company Number: US-PFIZER INC-PV202400153284

PATIENT
  Age: 12 Year
  Sex: Male
  Weight: 33.9 kg

DRUGS (4)
  1. GENOTROPIN [Suspect]
     Active Substance: SOMATROPIN
     Indication: Hypopituitarism
     Dosage: 1.7 MG (ALTERNATING 1.6/1.8 MG), 6X/WK
     Route: 058
     Dates: start: 20230912
  2. GENOTROPIN [Suspect]
     Active Substance: SOMATROPIN
     Indication: Growth hormone deficiency
     Dosage: 2.0 MG, 6 DAYS/WEEK
     Route: 058
     Dates: start: 20231208
  3. GENOTROPIN [Suspect]
     Active Substance: SOMATROPIN
     Dosage: 1.8 MG, 6 DAYS/WEEK
     Route: 058
     Dates: start: 20240404
  4. GENOTROPIN [Suspect]
     Active Substance: SOMATROPIN
     Dosage: 2.0 MG, 6 DAYS/WEEK
     Route: 058
     Dates: start: 20240718

REACTIONS (7)
  - Dry skin [Unknown]
  - Device physical property issue [Unknown]
  - Device mechanical issue [Unknown]
  - Device breakage [Unknown]
  - Drug dose omission by device [Unknown]
  - Device use error [Unknown]
  - Device material issue [Unknown]
